FAERS Safety Report 9530797 (Version 2)
Quarter: 2013Q4

REPORT INFORMATION
  Report Type: Report from Study
  Country: CL (occurrence: CL)
  Receive Date: 20130918
  Receipt Date: 20131011
  Transmission Date: 20140711
  Serious: Yes (Death, Hospitalization, Other)
  Sender: FDA-Public Use
  Company Number: CL-ROCHE-1277346

PATIENT
  Age: 66 Year
  Sex: Female
  Weight: 52 kg

DRUGS (2)
  1. XELODA [Suspect]
     Indication: BREAST CANCER
     Dosage: 14 DAY CYCLE, LAST DOSE ON 19/SEP/2013
     Route: 048
     Dates: start: 20121107
  2. GEMZAR [Suspect]
     Indication: BREAST CANCER
     Dosage: LAST DOSE ON 06/SEP/2013
     Route: 042
     Dates: start: 20121107

REACTIONS (3)
  - Respiratory failure [Fatal]
  - Acute respiratory failure [Not Recovered/Not Resolved]
  - Disease progression [Unknown]
